FAERS Safety Report 13101770 (Version 4)
Quarter: 2017Q1

REPORT INFORMATION
  Report Type: Spontaneous
  Country: US (occurrence: US)
  Receive Date: 20170110
  Receipt Date: 20170329
  Transmission Date: 20170428
  Serious: No
  Sender: FDA-Public Use
  Company Number: US-PFIZER INC-2017006495

PATIENT
  Age: 74 Year
  Sex: Female

DRUGS (3)
  1. IBRANCE [Suspect]
     Active Substance: PALBOCICLIB
     Dosage: 125 MG, CYCLIC (21 DAYS ON AND 7 DAYS OFF)
     Route: 048
     Dates: start: 20161118, end: 20170324
  2. FASLODEX [Concomitant]
     Active Substance: FULVESTRANT
     Dosage: UNK
  3. IBRANCE [Suspect]
     Active Substance: PALBOCICLIB
     Indication: BREAST CANCER FEMALE
     Dosage: 125 MG, CYCLIC (TAKE 1 CAPSULE PO QD FOR 21 DAYS ON AND 7 DAYS OFF)
     Route: 048
     Dates: start: 20150220, end: 20170324

REACTIONS (6)
  - Rash [Unknown]
  - Pruritus [Unknown]
  - Skin lesion [Unknown]
  - Erythema [Unknown]
  - Inflammation [Unknown]
  - Skin burning sensation [Unknown]
